FAERS Safety Report 11679915 (Version 2)
Quarter: 2015Q4

REPORT INFORMATION
  Report Type: Spontaneous
  Country: US (occurrence: US)
  Receive Date: 20151027
  Receipt Date: 20151104
  Transmission Date: 20160304
  Serious: No
  Sender: FDA-Public Use
  Company Number: US-ELI_LILLY_AND_COMPANY-US201011004640

PATIENT
  Age: 55 Year
  Sex: Female

DRUGS (18)
  1. FORTEO [Suspect]
     Active Substance: TERIPARATIDE
     Indication: OSTEOPOROSIS
     Dosage: 20 UG, QD
     Route: 065
     Dates: start: 20101102
  2. FORTEO [Suspect]
     Active Substance: TERIPARATIDE
     Dosage: 20 UG, QD
     Route: 065
  3. FORTEO [Suspect]
     Active Substance: TERIPARATIDE
     Dosage: 20 UG, QD
     Route: 065
  4. FORTEO [Suspect]
     Active Substance: TERIPARATIDE
     Dosage: 20 UG, QD
     Route: 065
  5. VITAMIN D3 [Concomitant]
     Active Substance: CHOLECALCIFEROL
  6. CITRACAL [Concomitant]
     Active Substance: CALCIUM CITRATE
  7. IBUPROFEN. [Concomitant]
     Active Substance: IBUPROFEN
  8. NEXIUM [Concomitant]
     Active Substance: ESOMEPRAZOLE MAGNESIUM
     Indication: GASTROOESOPHAGEAL REFLUX DISEASE
     Dosage: UNK
     Dates: end: 201108
  9. FLUOXETINE [Concomitant]
     Active Substance: FLUOXETINE HYDROCHLORIDE
  10. VITIRON [Concomitant]
  11. XANAX [Concomitant]
     Active Substance: ALPRAZOLAM
  12. FORTEO [Suspect]
     Active Substance: TERIPARATIDE
     Dosage: 20 UG, QD
     Route: 065
  13. FORTEO [Suspect]
     Active Substance: TERIPARATIDE
     Dosage: 20 UG, QD
     Route: 065
  14. CALCIUM [Concomitant]
     Active Substance: CALCIUM
     Dosage: 2 DF, QD
  15. CALCIUM [Concomitant]
     Active Substance: CALCIUM
     Dosage: 1 DF, QD
  16. VICODIN [Concomitant]
     Active Substance: ACETAMINOPHEN\HYDROCODONE BITARTRATE
  17. FORTEO [Suspect]
     Active Substance: TERIPARATIDE
     Dosage: 20 UG, QD
     Route: 065
  18. LOTREL [Concomitant]
     Active Substance: AMLODIPINE BESYLATE\BENAZEPRIL HYDROCHLORIDE

REACTIONS (35)
  - Nervousness [Unknown]
  - Hypertension [Recovered/Resolved]
  - Pain in extremity [Recovered/Resolved]
  - Pain in extremity [Not Recovered/Not Resolved]
  - Injection site pain [Unknown]
  - Cough [Not Recovered/Not Resolved]
  - Aphonia [Not Recovered/Not Resolved]
  - Feeling hot [Unknown]
  - Stress [Unknown]
  - Pain in extremity [Unknown]
  - Oliguria [Unknown]
  - Fatigue [Unknown]
  - Vocal cord inflammation [Unknown]
  - Influenza like illness [Unknown]
  - Nephrolithiasis [Unknown]
  - Fall [Recovered/Resolved]
  - Hand fracture [Recovering/Resolving]
  - Pollakiuria [Recovered/Resolved]
  - Urine odour abnormal [Unknown]
  - Urinary tract infection [Recovered/Resolved]
  - Micturition urgency [Recovered/Resolved]
  - Sinus disorder [Not Recovered/Not Resolved]
  - Arthralgia [Unknown]
  - Decreased activity [Recovered/Resolved]
  - Pollakiuria [Unknown]
  - Urine calcium increased [Recovered/Resolved]
  - Chronic obstructive pulmonary disease [Unknown]
  - Hypokinesia [Unknown]
  - Arthralgia [Recovered/Resolved]
  - Blood calcium increased [Recovered/Resolved]
  - Malaise [Recovered/Resolved]
  - Wrist fracture [Recovering/Resolving]
  - Asthenia [Unknown]
  - Injection site bruising [Unknown]
  - Injection site pain [Unknown]

NARRATIVE: CASE EVENT DATE: 20101121
